FAERS Safety Report 14197033 (Version 2)
Quarter: 2017Q4

REPORT INFORMATION
  Report Type: Spontaneous
  Country: DE (occurrence: DE)
  Receive Date: 20171116
  Receipt Date: 20171212
  Transmission Date: 20180321
  Serious: Yes (Other)
  Sender: FDA-Public Use
  Company Number: DE-B.I. PHARMACEUTICALS,INC./RIDGEFIELD-2017-BI-060804

PATIENT
  Age: 75 Year
  Sex: Female

DRUGS (4)
  1. DOCETAXEL. [Concomitant]
     Active Substance: DOCETAXEL
     Indication: PRODUCT USED FOR UNKNOWN INDICATION
     Route: 065
     Dates: start: 201507, end: 201601
  2. VARGATEF [Suspect]
     Active Substance: NINTEDANIB
     Dosage: DAILY DOSE: 600 MG MILLIGRAM(S) EVERY DAY
     Route: 065
     Dates: start: 201604, end: 201607
  3. DOCETAXEL. [Concomitant]
     Active Substance: DOCETAXEL
     Route: 065
     Dates: start: 201601
  4. VARGATEF [Suspect]
     Active Substance: NINTEDANIB
     Indication: LUNG ADENOCARCINOMA
     Dosage: DAILY DOSE: 400 MG MILLIGRAM(S) EVERY DAY
     Route: 065
     Dates: start: 201507, end: 201604

REACTIONS (5)
  - Lymphadenopathy [Unknown]
  - Lung disorder [Unknown]
  - Metastases to liver [Unknown]
  - Metastases to lung [Unknown]
  - Off label use [Recovered/Resolved]

NARRATIVE: CASE EVENT DATE: 201604
